FAERS Safety Report 20524999 (Version 1)
Quarter: 2022Q1

REPORT INFORMATION
  Report Type: Spontaneous
  Country: US (occurrence: US)
  Receive Date: 20220228
  Receipt Date: 20220228
  Transmission Date: 20220423
  Serious: No
  Sender: FDA-Public Use
  Company Number: US-NOVARTISTESTPH-NVSC2022US045845

PATIENT
  Age: 44 Year
  Sex: Male
  Weight: 185 kg

DRUGS (1)
  1. COSENTYX [Suspect]
     Active Substance: SECUKINUMAB
     Indication: Psoriasis
     Dosage: 300 MG, QW (WEEKLY WK 0-4)
     Route: 058
     Dates: start: 20210612

REACTIONS (2)
  - Medication error [Unknown]
  - Underdose [Unknown]
